FAERS Safety Report 6024357-3 (Version None)
Quarter: 2008Q4

REPORT INFORMATION
  Report Type: 
  Country: None (occurrence: None)
  Receive Date: 20081222
  Receipt Date: 20081014
  Transmission Date: 20090506
  Serious: No
  Sender: FDA-Public Use
  Company Number: SPV1-2008-02204

PATIENT
  Sex: Male
  Weight: 72.6 kg

DRUGS (2)
  1. VYVANSE [Suspect]
     Indication: ATTENTION DEFICIT/HYPERACTIVITY DISORDER
     Dosage: 50 MG, 1X/DAY:QD, ORAL
     Route: 048
     Dates: start: 20080601, end: 20080822
  2. LEXAPRO [Concomitant]

REACTIONS (5)
  - DEPRESSION [None]
  - FEELING JITTERY [None]
  - PRESSURE OF SPEECH [None]
  - PSYCHOMOTOR HYPERACTIVITY [None]
  - SUSPICIOUSNESS [None]
